FAERS Safety Report 19627629 (Version 1)
Quarter: 2021Q3

REPORT INFORMATION
  Report Type: Report from Study
  Country: US (occurrence: US)
  Receive Date: 20210729
  Receipt Date: 20210729
  Transmission Date: 20211014
  Serious: Yes (Other)
  Sender: FDA-Public Use
  Company Number: US-ASTELLAS-2021US027951

PATIENT
  Age: 62 Year
  Sex: Male

DRUGS (1)
  1. ASG?22CE [Suspect]
     Active Substance: ENFORTUMAB VEDOTIN
     Indication: TRANSITIONAL CELL CARCINOMA
     Dosage: 1.25 MG/KG, CYCLIC (ON EVERY 1,8,15 AND 28 DAY)
     Route: 042
     Dates: start: 20210310, end: 20210519

REACTIONS (4)
  - Anaemia [Unknown]
  - Thrombocytopenia [Recovered/Resolved]
  - Neuropathy peripheral [Recovering/Resolving]
  - Hyperglycaemia [Recovered/Resolved]

NARRATIVE: CASE EVENT DATE: 20210405
